FAERS Safety Report 5557082-3 (Version None)
Quarter: 2007Q4

REPORT INFORMATION
  Report Type: 
  Country: None (occurrence: None)
  Receive Date: 20071211
  Receipt Date: 20071206
  Transmission Date: 20080405
  Serious: Yes (Death, Hospitalization)
  Sender: FDA-Public Use
  Company Number: 2007SP024480

PATIENT
  Age: 53 Year
  Sex: Male
  Weight: 69 kg

DRUGS (1)
  1. TEMOZOLOMIDE [Suspect]
     Indication: GLIOBLASTOMA MULTIFORME
     Dosage: 75 MG M2
     Dates: start: 20070809, end: 20070925

REACTIONS (2)
  - BRONCHOPNEUMONIA [None]
  - PULMONARY EMBOLISM [None]
